FAERS Safety Report 7816265-X (Version None)
Quarter: 2011Q4

REPORT INFORMATION
  Report Type: 
  Country: None (occurrence: None)
  Receive Date: 20111016
  Receipt Date: 20111003
  Transmission Date: 20120403
  Serious: Yes (Disabling)
  Sender: FDA-Public Use
  Company Number: GB-MYLANLABS-2011S1020649

PATIENT
  Age: 65 Year
  Sex: Female

DRUGS (1)
  1. LETROZOLE [Suspect]
     Indication: BREAST CANCER STAGE II
     Route: 048
     Dates: start: 20080501

REACTIONS (3)
  - HEMIPLEGIA [None]
  - CEREBRAL INFARCTION [None]
  - APHASIA [None]
